FAERS Safety Report 14156664 (Version 1)
Quarter: 2017Q4

REPORT INFORMATION
  Report Type: Spontaneous
  Country: RU (occurrence: RU)
  Receive Date: 20171103
  Receipt Date: 20171103
  Transmission Date: 20180321
  Serious: Yes (Other)
  Sender: FDA-Public Use
  Company Number: RU-ROCHE-2013293

PATIENT
  Age: 52 Year
  Sex: Male

DRUGS (3)
  1. INTERFERON ALFA-2A [Suspect]
     Active Substance: INTERFERON ALFA-2A
     Indication: MALIGNANT MELANOMA
     Route: 065
     Dates: end: 201410
  2. VEMURAFENIB. [Suspect]
     Active Substance: VEMURAFENIB
     Indication: MALIGNANT MELANOMA
     Route: 048
     Dates: start: 201506
  3. DACARBAZINE. [Suspect]
     Active Substance: DACARBAZINE
     Indication: MALIGNANT MELANOMA
     Dosage: 3 WEEKS BREAK AFTER 5 ADMINISTRATIONS
     Route: 042
     Dates: start: 201404

REACTIONS (3)
  - Hepatotoxicity [Recovered/Resolved]
  - Drug ineffective [Unknown]
  - Disease progression [Unknown]

NARRATIVE: CASE EVENT DATE: 2015
